FAERS Safety Report 19443687 (Version 1)
Quarter: 2021Q2

REPORT INFORMATION
  Report Type: Spontaneous
  Country: US (occurrence: US)
  Receive Date: 20210621
  Receipt Date: 20210621
  Transmission Date: 20210717
  Serious: Yes (Other)
  Sender: FDA-Public Use
  Company Number: US-PFIZER INC-2020069483

PATIENT
  Age: 70 Year
  Sex: Female
  Weight: 97.52 kg

DRUGS (3)
  1. PRISTIQ EXTENDED?RELEASE [Suspect]
     Active Substance: DESVENLAFAXINE SUCCINATE
     Dosage: 50 MG, 1X/DAY
     Route: 048
     Dates: start: 20200610
  2. PRISTIQ EXTENDED?RELEASE [Suspect]
     Active Substance: DESVENLAFAXINE SUCCINATE
     Dosage: 100 MG, DAILY
     Route: 048
     Dates: start: 20210304, end: 20210609
  3. PRISTIQ EXTENDED?RELEASE [Suspect]
     Active Substance: DESVENLAFAXINE SUCCINATE
     Indication: DEPRESSION
     Dosage: 75 MG, DAILY (TAKE ONE 25 MG PILL DAILY ALONG WITH 50 MG PILL TO EQUAL 75 MG TOTAL/TAKE ONE 50 MG PI

REACTIONS (2)
  - Parkinson^s disease [Unknown]
  - Depression [Unknown]
